FAERS Safety Report 9563755 (Version 1)
Quarter: 2013Q1

REPORT INFORMATION
  Report Type: Spontaneous
  Country: US (occurrence: None)
  Receive Date: 20121212
  Receipt Date: 20121212
  Transmission Date: 20140127
  Serious: No
  Sender: FDA-Public Use
  Company Number: 1209USA002119

PATIENT
  Age: 39 Year
  Sex: Female

DRUGS (3)
  1. VICTRELIS [Suspect]
     Indication: HEPATITIS C
     Dates: start: 20120630
  2. REBETOL [Suspect]
     Indication: HEPATITIS C
     Dates: start: 20120601
  3. PEGASYS (PEGINTERFERON ALFA-2A) [Concomitant]

REACTIONS (5)
  - Thirst [None]
  - Fatigue [None]
  - Dysgeusia [None]
  - Anaemia [None]
  - Inappropriate schedule of drug administration [None]
